FAERS Safety Report 15219898 (Version 1)
Quarter: 2018Q3

REPORT INFORMATION
  Report Type: Spontaneous
  Country: US (occurrence: US)
  Receive Date: 20180704
  Receipt Date: 20180704
  Transmission Date: 20181010
  Serious: Yes (Disabling)
  Sender: FDA-Public Use
  Company Number: None

PATIENT
  Age: 30 Year
  Sex: Female
  Weight: 51.3 kg

DRUGS (6)
  1. VITAMIN B12 [Concomitant]
     Active Substance: CYANOCOBALAMIN
  2. MAGNESIUM [Concomitant]
     Active Substance: MAGNESIUM
  3. CIPROFLOXACIN. [Suspect]
     Active Substance: CIPROFLOXACIN
     Indication: URINARY TRACT INFECTION
     Dosage: ?          QUANTITY:2 CAPSULE(S);?
     Route: 048
     Dates: start: 20180625, end: 20180626
  4. MACROBIDAL [Concomitant]
  5. AMOXACILAN [Concomitant]
  6. VITAMIN D [Concomitant]
     Active Substance: CHOLECALCIFEROL

REACTIONS (12)
  - Thinking abnormal [None]
  - Malaise [None]
  - Memory impairment [None]
  - Fibromyalgia [None]
  - Loss of personal independence in daily activities [None]
  - Quality of life decreased [None]
  - Fatigue [None]
  - Paraesthesia [None]
  - Pain [None]
  - Drug effect incomplete [None]
  - Muscle spasms [None]
  - Disturbance in attention [None]

NARRATIVE: CASE EVENT DATE: 20180625
